FAERS Safety Report 21091230 (Version 1)
Quarter: 2022Q3

REPORT INFORMATION
  Report Type: Spontaneous
  Country: US (occurrence: US)
  Receive Date: 20220716
  Receipt Date: 20220716
  Transmission Date: 20221026
  Serious: Yes (Life-Threatening, Other)
  Sender: FDA-Public Use
  Company Number: US-drreddys-LIT/USA/22/0152206

PATIENT
  Age: 74 Year
  Sex: Male

DRUGS (27)
  1. NALOXONE HYDROCHLORIDE [Suspect]
     Active Substance: NALOXONE HYDROCHLORIDE
     Indication: Respiratory depression
  2. NALOXONE HYDROCHLORIDE [Suspect]
     Active Substance: NALOXONE HYDROCHLORIDE
     Dosage: ANOTHER THREE DOSES
  3. PREGABALIN [Suspect]
     Active Substance: PREGABALIN
     Indication: Fibromyalgia
  4. PREGABALIN [Suspect]
     Active Substance: PREGABALIN
     Dosage: PREOPERATIVELY
  5. BUPRENORPHINE [Suspect]
     Active Substance: BUPRENORPHINE
     Indication: Nerve block
     Dosage: BLOCK SOLUTION OF 20ML OF BUPIVACAINE WITH 300 MICROG BUPRENORPHINE, CLONIDINE AND DEXAMETHASONE WAS
     Route: 053
  6. BUPRENORPHINE [Suspect]
     Active Substance: BUPRENORPHINE
     Indication: Nerve block
     Dosage: 22ML OF SODIUM-CHLORIDE [STERILE SALINE] CONTAINING 300 ?G BUPRENORPHINE, CLONIDINE AND DEXAMETHASON
  7. BUPRENORPHINE [Suspect]
     Active Substance: BUPRENORPHINE
     Dosage: A TOTAL OF 600 MICROG PERINEURAL BUPRENORPHINE WAS USED FOR DUAL NERVE BLOCKS
     Route: 053
  8. DEXAMETHASONE SODIUM PHOSPHATE [Concomitant]
     Active Substance: DEXAMETHASONE SODIUM PHOSPHATE
     Indication: Product used for unknown indication
     Dosage: BLOCK SOLUTION OF 20ML OF BUPIVACAINE WITH 300 MICROG BUPRENORPHINE, CLONIDINE AND DEXAMETHASONE WAS
     Route: 053
  9. DEXAMETHASONE SODIUM PHOSPHATE [Concomitant]
     Active Substance: DEXAMETHASONE SODIUM PHOSPHATE
     Dosage: 22ML OF SODIUM-CHLORIDE [STERILE SALINE] CONTAINING 300 MICROG BUPRENORPHINE, CLONIDINE AND DEXAMETH
  10. OMEPRAZOLE [Concomitant]
     Active Substance: OMEPRAZOLE
     Indication: Product used for unknown indication
  11. FENTANYL CITRATE [Concomitant]
     Active Substance: FENTANYL CITRATE
     Indication: Analgesic therapy
  12. PROPOFOL [Concomitant]
     Active Substance: PROPOFOL
     Indication: Induction of anaesthesia
  13. SUCCINYLCHOLINE CHLORIDE [Concomitant]
     Active Substance: SUCCINYLCHOLINE CHLORIDE
     Indication: Induction of anaesthesia
  14. ONDANSETRON [Concomitant]
     Active Substance: ONDANSETRON
     Indication: Induction of anaesthesia
  15. APREPITANT [Concomitant]
     Active Substance: APREPITANT
     Indication: Product used for unknown indication
  16. PERPHENAZINE [Concomitant]
     Active Substance: PERPHENAZINE
     Indication: Product used for unknown indication
  17. ACETAMINOPHEN [Concomitant]
     Active Substance: ACETAMINOPHEN
     Indication: Product used for unknown indication
  18. MIDAZOLAM [Concomitant]
     Active Substance: MIDAZOLAM
     Indication: Sedation
  19. BUPIVACAINE [Concomitant]
     Active Substance: BUPIVACAINE
     Indication: Product used for unknown indication
     Dosage: BLOCK SOLUTION OF 20ML OF BUPIVACAINE WITH 300 MICROG BUPRENORPHINE, CLONIDINE AND DEXAMETHASONE WAS
     Route: 053
  20. CLONIDINE [Concomitant]
     Active Substance: CLONIDINE
     Indication: Product used for unknown indication
     Dosage: BLOCK SOLUTION OF 20ML OF BUPIVACAINE WITH 300 MICROG BUPRENORPHINE, CLONIDINE AND DEXAMETHASONE WAS
  21. CLONIDINE [Concomitant]
     Active Substance: CLONIDINE
     Dosage: 22ML OF SODIUM-CHLORIDE [STERILE SALINE] CONTAINING 300 MICROG BUPRENORPHINE, CLONIDINE AND DEXAMETH
  22. STERILE SALINE [Concomitant]
     Indication: Product used for unknown indication
     Dosage: 22ML OF SODIUM-CHLORIDE [STERILE SALINE] CONTAINING 300 MICROG BUPRENORPHINE, CLONIDINE AND DEXAMETH
  23. KETAMINE [Concomitant]
     Active Substance: KETAMINE
     Indication: Induction of anaesthesia
  24. HYDROMORPHONE [Concomitant]
     Active Substance: HYDROMORPHONE
     Indication: Induction of anaesthesia
  25. LIDOCAINE [Concomitant]
     Active Substance: LIDOCAINE
     Indication: Induction of anaesthesia
  26. ROCURONIUM [Concomitant]
     Active Substance: ROCURONIUM BROMIDE
     Indication: Induction of anaesthesia
  27. PHENYLEPHRINE [Concomitant]
     Active Substance: PHENYLEPHRINE HYDROCHLORIDE
     Indication: Induction of anaesthesia

REACTIONS (2)
  - Drug ineffective [Unknown]
  - Respiratory depression [Not Recovered/Not Resolved]
